FAERS Safety Report 7761624-7 (Version None)
Quarter: 2011Q3

REPORT INFORMATION
  Report Type: 
  Country: None (occurrence: None)
  Receive Date: 20110920
  Receipt Date: 20110914
  Transmission Date: 20111222
  Serious: Yes (Death)
  Sender: FDA-Public Use
  Company Number: US-ASTELLAS-2011US005884

PATIENT
  Sex: Male
  Weight: 78 kg

DRUGS (6)
  1. PLAVIX [Concomitant]
     Indication: ANTICOAGULANT THERAPY
     Dosage: 75 MG, UID/QD
     Route: 048
     Dates: end: 20110912
  2. PROGRAF [Suspect]
     Indication: RENAL TRANSPLANT
     Dosage: 2 MG, BID
     Route: 048
     Dates: start: 20040422
  3. NEXIUM [Concomitant]
     Indication: DYSPEPSIA
     Dosage: 20 MG, UID/QD
     Route: 048
  4. MYCOPHENOLATE MOFETIL (CELLCEPT) [Concomitant]
     Indication: RENAL TRANSPLANT
     Dosage: 1500 MG, BID
     Route: 048
     Dates: end: 20110912
  5. PRAVASTATIN [Concomitant]
     Indication: BLOOD CHOLESTEROL
     Dosage: 40 MG, UID/QD
     Route: 048
     Dates: end: 20110912
  6. RAPAMUNE [Concomitant]
     Indication: RENAL TRANSPLANT
     Dosage: 1 MG, UID/QD
     Route: 048
     Dates: end: 20110912

REACTIONS (1)
  - CARDIAC ARREST [None]
